FAERS Safety Report 7810368-1 (Version None)
Quarter: 2011Q4

REPORT INFORMATION
  Report Type: 
  Country: None (occurrence: None)
  Receive Date: 20111012
  Receipt Date: 20111003
  Transmission Date: 20120403
  Serious: Yes (Other)
  Sender: FDA-Public Use
  Company Number: US-ASTRAZENECA-2011SE59611

PATIENT
  Age: 53 Year
  Sex: Male

DRUGS (4)
  1. CYMBALTA [Concomitant]
  2. LIPITOR [Concomitant]
  3. NEXIUM [Suspect]
     Route: 048
  4. TRICOR [Concomitant]

REACTIONS (8)
  - VISION BLURRED [None]
  - LIMB DISCOMFORT [None]
  - CEREBROVASCULAR ACCIDENT [None]
  - BACK DISORDER [None]
  - MALAISE [None]
  - DRUG DOSE OMISSION [None]
  - TUNNEL VISION [None]
  - ROAD TRAFFIC ACCIDENT [None]
